FAERS Safety Report 4815430-3 (Version None)
Quarter: 2005Q4

REPORT INFORMATION
  Report Type: 
  Country: None (occurrence: None)
  Receive Date: 20051031
  Receipt Date: 20051026
  Transmission Date: 20060501
  Serious: Yes (Life-Threatening, Hospitalization, Disabling)
  Sender: FDA-Public Use
  Company Number: GB-BOEHRINGER INGELHEIM PHARMACEUTICALS, INC.-2005-UK-02169UK

PATIENT
  Age: 1 Year
  Sex: Female

DRUGS (2)
  1. NEVIRAPINE (EU/1/97/055/001) [Suspect]
     Indication: RETROVIRAL INFECTION
     Dosage: 200 MG TWICE DAILY
     Route: 048
     Dates: start: 20040116
  2. COMBIVIR [Suspect]
     Indication: RETROVIRAL INFECTION
     Route: 048
     Dates: start: 20040116

REACTIONS (1)
  - RETINOBLASTOMA BILATERAL [None]
